FAERS Safety Report 11672810 (Version 1)
Quarter: 2015Q4

REPORT INFORMATION
  Report Type: Spontaneous
  Country: US (occurrence: None)
  Receive Date: 20151027
  Receipt Date: 20151027
  Transmission Date: 20160304
  Serious: No
  Sender: FDA-Public Use
  Company Number: None

PATIENT
  Age: 40 Year
  Sex: Male
  Weight: 90.72 kg

DRUGS (1)
  1. PROPECIA [Suspect]
     Active Substance: FINASTERIDE
     Indication: ALOPECIA
     Dosage: 30
     Route: 048
     Dates: start: 20151019, end: 20151025

REACTIONS (3)
  - Testicular pain [None]
  - Hypoaesthesia [None]
  - Abasia [None]

NARRATIVE: CASE EVENT DATE: 20151025
